FAERS Safety Report 22020116 (Version 4)
Quarter: 2023Q1

REPORT INFORMATION
  Report Type: Report from Study
  Country: US (occurrence: US)
  Receive Date: 20230222
  Receipt Date: 20230227
  Transmission Date: 20230418
  Serious: Yes (Death, Hospitalization)
  Sender: FDA-Public Use
  Company Number: US-MYLANLABS-2023M1018953

PATIENT
  Age: 15 Year
  Sex: Female

DRUGS (10)
  1. AMLODIPINE BESYLATE [Suspect]
     Active Substance: AMLODIPINE BESYLATE
     Dosage: UNK
     Route: 065
  2. NOREPINEPHRINE BITARTRATE [Suspect]
     Active Substance: NOREPINEPHRINE BITARTRATE
     Dosage: UNK
     Route: 065
  3. EPINEPHRINE [Suspect]
     Active Substance: EPINEPHRINE
     Indication: Toxicity to various agents
     Dosage: UNK
     Route: 065
  4. DEXTROSE [Suspect]
     Active Substance: DEXTROSE
     Indication: Toxicity to various agents
     Dosage: UNK; }5%
     Route: 065
  5. IBUPROFEN [Suspect]
     Active Substance: IBUPROFEN
     Dosage: UNK
     Route: 065
  6. PRAVASTATIN [Suspect]
     Active Substance: PRAVASTATIN
     Dosage: UNK
     Route: 065
  7. INSULIN NOS [Suspect]
     Active Substance: INSULIN NOS
     Indication: Toxicity to various agents
     Dosage: UNK (HIGH-DOSE INSULIN EUGLYCAEMIC THERAPY)
     Route: 065
  8. HYDROCODONE [Suspect]
     Active Substance: HYDROCODONE
     Dosage: UNK
     Route: 065
  9. FAT EMULSION NOS [Suspect]
     Active Substance: EGG PHOSPHOLIPIDS\SAFFLOWER OIL\SOYBEAN OIL
     Indication: Toxicity to various agents
     Dosage: UNK
     Route: 065
  10. VASOPRESSIN [Suspect]
     Active Substance: VASOPRESSIN
     Indication: Toxicity to various agents
     Dosage: UNK
     Route: 065

REACTIONS (7)
  - Toxicity to various agents [Fatal]
  - Hypotension [Fatal]
  - Electrocardiogram QT prolonged [Fatal]
  - Metabolic acidosis [Fatal]
  - Coagulopathy [Fatal]
  - Leukocytosis [Fatal]
  - Drug ineffective [Fatal]
